FAERS Safety Report 14723094 (Version 1)
Quarter: 2018Q2

REPORT INFORMATION
  Report Type: Spontaneous
  Country: US (occurrence: US)
  Receive Date: 20180401
  Receipt Date: 20180401
  Transmission Date: 20180711
  Serious: Yes (Hospitalization)
  Sender: FDA-Public Use
  Company Number: None

PATIENT
  Age: 19 Year
  Sex: Male
  Weight: 78.75 kg

DRUGS (1)
  1. WALLGREENS BRAND CORICIDAN (DEXTROMETHORPHAN HYDROBROMIDE) [Suspect]
     Active Substance: DEXTROMETHORPHAN HYDROBROMIDE
     Indication: DRUG ABUSE
     Route: 048
     Dates: start: 20180320, end: 20180321

REACTIONS (2)
  - Tachycardia [None]
  - Overdose [None]

NARRATIVE: CASE EVENT DATE: 20180321
